FAERS Safety Report 17083548 (Version 1)
Quarter: 2019Q4

REPORT INFORMATION
  Report Type: Report from Study
  Country: US (occurrence: US)
  Receive Date: 20191127
  Receipt Date: 20191127
  Transmission Date: 20200122
  Serious: Yes (Hospitalization)
  Sender: FDA-Public Use
  Company Number: US-EISAI MEDICAL RESEARCH-EC-2019-063060

PATIENT
  Sex: Female

DRUGS (3)
  1. LENVIMA [Suspect]
     Active Substance: LENVATINIB
     Indication: RENAL CANCER
     Dosage: TAKING FOR 2 WEEKS AND ONE WEEK OFF
     Route: 048
     Dates: start: 20190830, end: 201909
  2. LENVIMA [Suspect]
     Active Substance: LENVATINIB
     Dosage: TAKING FOR 2 WEEKS AND ONE WEEK OFF
     Route: 048
     Dates: start: 201909, end: 2019
  3. LENVIMA [Suspect]
     Active Substance: LENVATINIB
     Route: 048
     Dates: start: 2019

REACTIONS (10)
  - Nausea [Recovered/Resolved]
  - Vomiting [Recovered/Resolved]
  - Hypotension [Recovered/Resolved]
  - Thrombosis [Recovered/Resolved]
  - Incorrect dosage administered [Unknown]
  - Malaise [Recovered/Resolved]
  - Decreased appetite [Unknown]
  - Diarrhoea [Unknown]
  - Abdominal pain upper [Unknown]
  - Hypertension [Unknown]

NARRATIVE: CASE EVENT DATE: 2019
